FAERS Safety Report 24191724 (Version 1)
Quarter: 2024Q3

REPORT INFORMATION
  Report Type: Spontaneous
  Country: US (occurrence: US)
  Receive Date: 20240809
  Receipt Date: 20240809
  Transmission Date: 20241017
  Serious: No
  Sender: ABBVIE
  Company Number: US-ABBVIE-5868510

PATIENT
  Sex: Female

DRUGS (3)
  1. LINACLOTIDE [Suspect]
     Active Substance: LINACLOTIDE
     Indication: Proctitis
     Route: 048
  2. MAGNESIUM [Concomitant]
     Active Substance: MAGNESIUM
     Indication: Product used for unknown indication
  3. FISH OIL [Concomitant]
     Active Substance: FISH OIL
     Indication: Product used for unknown indication

REACTIONS (3)
  - Off label use [Unknown]
  - Rectal haemorrhage [Unknown]
  - Drug ineffective for unapproved indication [Unknown]
